FAERS Safety Report 22637952 (Version 1)
Quarter: 2023Q2

REPORT INFORMATION
  Report Type: Spontaneous
  Country: US (occurrence: None)
  Receive Date: 20230623
  Receipt Date: 20230623
  Transmission Date: 20230722
  Serious: Yes (Hospitalization, Disabling, Other)
  Sender: FDA-Public Use
  Company Number: None

PATIENT
  Age: 54 Year
  Weight: 76.5 kg

DRUGS (1)
  1. BUPRENORPHINE [Suspect]
     Active Substance: BUPRENORPHINE
     Indication: Pain
     Dates: start: 20210920, end: 20220412

REACTIONS (6)
  - Drug ineffective [None]
  - Amnesia [None]
  - Disability [None]
  - Pain [None]
  - Hallucination [None]
  - Toxicity to various agents [None]

NARRATIVE: CASE EVENT DATE: 20220316
